FAERS Safety Report 7289367-7 (Version None)
Quarter: 2011Q1

REPORT INFORMATION
  Report Type: 
  Country: None (occurrence: None)
  Receive Date: 20110211
  Receipt Date: 20110203
  Transmission Date: 20110831
  Serious: Yes (Other)
  Sender: FDA-Public Use
  Company Number: US-US-EMD SERONO, INC.-7008772

PATIENT
  Sex: Female
  Weight: 142 kg

DRUGS (7)
  1. REBIF [Suspect]
     Indication: MULTIPLE SCLEROSIS
     Route: 058
     Dates: start: 20100518, end: 20100101
  2. CELEXA [Concomitant]
     Indication: DEPRESSION
  3. TYLENOL PM [Concomitant]
     Indication: INSOMNIA
  4. UNISOM [Concomitant]
     Indication: INSOMNIA
  5. REBIF [Suspect]
     Route: 058
     Dates: start: 20100101, end: 20100101
  6. ABILIFY [Concomitant]
     Indication: DEPRESSION
  7. REBIF [Suspect]
     Route: 058
     Dates: start: 20100101, end: 20101023

REACTIONS (7)
  - INSOMNIA [None]
  - PARAESTHESIA [None]
  - MULTIPLE SCLEROSIS RELAPSE [None]
  - MEMORY IMPAIRMENT [None]
  - COGNITIVE DISORDER [None]
  - DEPRESSION [None]
  - SUICIDAL IDEATION [None]
